FAERS Safety Report 11213124 (Version 1)
Quarter: 2015Q2

REPORT INFORMATION
  Report Type: Spontaneous
  Country: US (occurrence: US)
  Receive Date: 20150623
  Receipt Date: 20150623
  Transmission Date: 20150821
  Serious: Yes (Other)
  Sender: FDA-Public Use
  Company Number: US-TEVA-571717USA

PATIENT
  Sex: Female
  Weight: 49.03 kg

DRUGS (6)
  1. CARVEDILOL. [Concomitant]
     Active Substance: CARVEDILOL
     Indication: CARDIAC DISORDER
  2. DIGITEK [Concomitant]
     Active Substance: DIGOXIN
     Indication: HEART RATE
  3. AZILECT [Suspect]
     Active Substance: RASAGILINE MESYLATE
     Indication: PARKINSON^S DISEASE
     Dosage: 1 MILLIGRAM DAILY; AT BEDTIME
     Route: 048
     Dates: start: 2014, end: 20150507
  4. AZILECT [Suspect]
     Active Substance: RASAGILINE MESYLATE
     Indication: RESTLESS LEGS SYNDROME
  5. CARBIDOPA W/LEVODOPA [Concomitant]
     Active Substance: CARBIDOPA\LEVODOPA
     Indication: PARKINSON^S DISEASE
  6. FUROSEMIDE. [Concomitant]
     Active Substance: FUROSEMIDE
     Indication: FLUID RETENTION

REACTIONS (10)
  - Insomnia [Not Recovered/Not Resolved]
  - Product use issue [Recovered/Resolved]
  - Vision blurred [Recovered/Resolved]
  - Decreased appetite [Recovered/Resolved]
  - Renal impairment [Recovering/Resolving]
  - Abdominal pain upper [Recovered/Resolved]
  - Hepatic function abnormal [Recovering/Resolving]
  - Weight decreased [Recovered/Resolved]
  - Nausea [Recovered/Resolved]
  - Adverse event [Unknown]

NARRATIVE: CASE EVENT DATE: 2014
